FAERS Safety Report 6852890-0 (Version None)
Quarter: 2010Q3

REPORT INFORMATION
  Report Type: 
  Country: None (occurrence: None)
  Receive Date: 20100717
  Receipt Date: 20071126
  Transmission Date: 20110219
  Serious: Yes (Other)
  Sender: FDA-Public Use
  Company Number: US-PFIZER INC-2007101019

PATIENT
  Sex: Male
  Weight: 104.54 kg

DRUGS (5)
  1. CHANTIX [Suspect]
     Indication: SMOKING CESSATION THERAPY
     Dosage: QD EVERYDAY
     Route: 048
     Dates: start: 20071101, end: 20071121
  2. LISINOPRIL AND HYDROCHLOROTHIAZIDE [Concomitant]
     Indication: BLOOD PRESSURE ABNORMAL
  3. HYDROCODONE [Concomitant]
     Indication: PAIN
     Dosage: AS NEEDED 4 OR 5 TIMES WEEKLY
  4. HYDROCODONE [Concomitant]
     Indication: BACK DISORDER
  5. FISH OIL [Concomitant]

REACTIONS (6)
  - ABNORMAL DREAMS [None]
  - AGGRESSION [None]
  - CONSTIPATION [None]
  - CRYING [None]
  - HYPERHIDROSIS [None]
  - SCREAMING [None]
